FAERS Safety Report 23196515 (Version 3)
Quarter: 2024Q2

REPORT INFORMATION
  Report Type: Report from Study
  Country: US (occurrence: US)
  Receive Date: 20231117
  Receipt Date: 20240512
  Transmission Date: 20240716
  Serious: No
  Sender: FDA-Public Use
  Company Number: US-ALXN-A202307723

PATIENT
  Sex: Male

DRUGS (5)
  1. ULTOMIRIS [Suspect]
     Active Substance: RAVULIZUMAB-CWVZ
     Indication: Myasthenia gravis
     Dosage: UNK
     Route: 042
  2. BENADRYL [Suspect]
     Active Substance: DIPHENHYDRAMINE HYDROCHLORIDE
     Indication: Product used for unknown indication
     Dosage: UNK
     Route: 065
     Dates: start: 20230607
  3. PYRIDOXAMINE [Concomitant]
     Indication: Product used for unknown indication
     Route: 065
  4. TYLENOL [Concomitant]
     Active Substance: ACETAMINOPHEN
     Indication: Product used for unknown indication
     Dosage: UNK
     Route: 065
     Dates: start: 20230607
  5. PYRIDOSTIGMINE [Concomitant]
     Active Substance: PYRIDOSTIGMINE
     Indication: Product used for unknown indication
     Dosage: UNK
     Route: 065
     Dates: start: 20230927

REACTIONS (14)
  - Infusion site pain [Unknown]
  - Pain [Unknown]
  - Diplopia [Not Recovered/Not Resolved]
  - COVID-19 [Unknown]
  - Illness [Unknown]
  - Productive cough [Unknown]
  - Urinary tract infection [Unknown]
  - Stress [Unknown]
  - Infusion site discolouration [Recovered/Resolved]
  - Drug ineffective [Unknown]
  - Nausea [Unknown]
  - Asthenia [Unknown]
  - Pyrexia [Unknown]
  - Fatigue [Unknown]
